FAERS Safety Report 4690281-1 (Version None)
Quarter: 2005Q2

REPORT INFORMATION
  Report Type: 
  Country: None (occurrence: None)
  Receive Date: 20050615
  Receipt Date: 20041203
  Transmission Date: 20051028
  Serious: Yes (Other)
  Sender: FDA-Public Use
  Company Number: GB-GLAXOSMITHKLINE-B0359492A

PATIENT
  Sex: Male

DRUGS (1)
  1. SEROXAT [Suspect]
     Route: 065
     Dates: start: 19971101

REACTIONS (8)
  - CHEST PAIN [None]
  - COMPLETED SUICIDE [None]
  - DRY MOUTH [None]
  - ERECTILE DYSFUNCTION [None]
  - HYPERHIDROSIS [None]
  - ILL-DEFINED DISORDER [None]
  - PALPITATIONS [None]
  - STOMACH DISCOMFORT [None]
